FAERS Safety Report 9184107 (Version 1)
Quarter: 2013Q1

REPORT INFORMATION
  Report Type: Spontaneous
  Country: FR (occurrence: FR)
  Receive Date: 20130322
  Receipt Date: 20130322
  Transmission Date: 20140127
  Serious: Yes (Hospitalization)
  Sender: FDA-Public Use
  Company Number: FR-PFIZER INC-2013091082

PATIENT
  Age: 7 Year
  Sex: Female
  Weight: 17.5 kg

DRUGS (4)
  1. ZARONTIN [Suspect]
     Indication: PARTIAL SEIZURES
     Dosage: UNK
     Route: 048
     Dates: start: 201104, end: 201209
  2. OSPOLOT [Suspect]
     Indication: PARTIAL SEIZURES
     Dosage: 150 MG DAILY, 2X/DAY
     Route: 048
     Dates: start: 201112
  3. URBANYL [Concomitant]
     Dosage: UNK
     Dates: start: 201104
  4. CLAMOXYL [Concomitant]
     Dosage: UNK
     Route: 048
     Dates: start: 20121130

REACTIONS (3)
  - Decreased appetite [Recovered/Resolved with Sequelae]
  - Weight decreased [Not Recovered/Not Resolved]
  - Enteral nutrition [Recovered/Resolved with Sequelae]
